FAERS Safety Report 6245493-2 (Version None)
Quarter: 2009Q2

REPORT INFORMATION
  Report Type: 
  Country: None (occurrence: None)
  Receive Date: 20090625
  Receipt Date: 20090622
  Transmission Date: 20091009
  Serious: Yes (Other)
  Sender: FDA-Public Use
  Company Number: AT-AMGEN-UK350650

PATIENT
  Sex: Female

DRUGS (7)
  1. ROMIPLOSTIM [Suspect]
     Indication: IDIOPATHIC THROMBOCYTOPENIC PURPURA
     Route: 058
     Dates: start: 20090423
  2. MEXALEN [Concomitant]
     Route: 065
     Dates: start: 20090523
  3. SEREVENT [Concomitant]
     Route: 050
     Dates: start: 20090523
  4. PANTOPRAZOLE SODIUM [Concomitant]
     Route: 065
  5. DILTIAZEM [Concomitant]
     Route: 065
  6. SELOKEN [Concomitant]
     Route: 065
  7. AZELASTINE HCL [Concomitant]
     Route: 047

REACTIONS (1)
  - VENOUS THROMBOSIS [None]
